FAERS Safety Report 9419779 (Version 1)
Quarter: 2013Q3

REPORT INFORMATION
  Report Type: Spontaneous
  Country: DE (occurrence: DE)
  Receive Date: 20130725
  Receipt Date: 20130725
  Transmission Date: 20140515
  Serious: Yes (Hospitalization)
  Sender: FDA-Public Use
  Company Number: DE-JNJFOC-20130709284

PATIENT
  Age: 77 Year
  Sex: Female

DRUGS (2)
  1. RISPERDAL [Suspect]
     Indication: PSYCHOTIC DISORDER
     Route: 048
     Dates: start: 20120706
  2. JATROSOM [Suspect]
     Indication: DEPRESSION
     Route: 048
     Dates: start: 20120131

REACTIONS (2)
  - Convulsion [Unknown]
  - Hyponatraemia [Unknown]
